FAERS Safety Report 14163956 (Version 3)
Quarter: 2018Q1

REPORT INFORMATION
  Report Type: Report from Study
  Country: US (occurrence: US)
  Receive Date: 20171106
  Receipt Date: 20180307
  Transmission Date: 20180508
  Serious: Yes (Other)
  Sender: FDA-Public Use
  Company Number: US-VIFOR (INTERNATIONAL) INC.-VIT-2017-10404

PATIENT
  Sex: Female

DRUGS (13)
  1. CLONIDINE HYDROCHLORIDE. [Concomitant]
     Active Substance: CLONIDINE HYDROCHLORIDE
  2. COLECALCIFEROL [Concomitant]
     Active Substance: CHOLECALCIFEROL
  3. PROLIA [Concomitant]
     Active Substance: DENOSUMAB
  4. BIOTIN [Concomitant]
     Active Substance: BIOTIN
  5. VELTASSA [Suspect]
     Active Substance: PATIROMER
     Indication: HYPERKALAEMIA
     Route: 048
     Dates: start: 201710
  6. ACETYLSALICYLIC ACID [Concomitant]
     Active Substance: ASPIRIN
  7. FLUTICASONE FUROATE~~VILANTEROL TRIFENATATE [Concomitant]
  8. COLCRYS [Concomitant]
     Active Substance: COLCHICINE
  9. VALSARTAN. [Concomitant]
     Active Substance: VALSARTAN
  10. SIMVASTATIN. [Concomitant]
     Active Substance: SIMVASTATIN
  11. MAGNESIUM OXIDE. [Concomitant]
     Active Substance: MAGNESIUM OXIDE
     Indication: MINERAL SUPPLEMENTATION
  12. FISH OIL [Concomitant]
     Active Substance: FISH OIL
  13. NATEGLINIDE. [Concomitant]
     Active Substance: NATEGLINIDE

REACTIONS (5)
  - Drug interaction [Recovered/Resolved]
  - Lower respiratory tract infection [Recovering/Resolving]
  - Blood pressure increased [Recovering/Resolving]
  - Flatulence [Recovering/Resolving]
  - Blood glucose increased [Recovered/Resolved]

NARRATIVE: CASE EVENT DATE: 2017
